FAERS Safety Report 17985967 (Version 1)
Quarter: 2020Q3

REPORT INFORMATION
  Report Type: Spontaneous
  Country: FR (occurrence: FR)
  Receive Date: 20200706
  Receipt Date: 20200706
  Transmission Date: 20201103
  Serious: Yes (Life-Threatening)
  Sender: FDA-Public Use
  Company Number: NVSC2020FR190563

PATIENT
  Age: 34 Year
  Sex: Female

DRUGS (2)
  1. DAILY [Suspect]
     Active Substance: ETHINYL ESTRADIOL\LEVONORGESTREL
     Indication: CONTRACEPTION
     Dosage: UNK
     Route: 048
     Dates: start: 201909, end: 201909
  2. AMOXICILLINE [Suspect]
     Active Substance: AMOXICILLIN
     Indication: INTERVENTIONAL PROCEDURE
     Dosage: UNK (NON RENSEIGN?E)
     Route: 042
     Dates: start: 201909, end: 201909

REACTIONS (3)
  - Anaphylactic shock [Recovered/Resolved]
  - Hypertension [Recovered/Resolved]
  - Rash [Recovered/Resolved]

NARRATIVE: CASE EVENT DATE: 201909
